FAERS Safety Report 5374696-4 (Version None)
Quarter: 2007Q2

REPORT INFORMATION
  Report Type: 
  Country: None (occurrence: None)
  Receive Date: 20070629
  Receipt Date: 20070623
  Transmission Date: 20071010
  Serious: Yes (Other)
  Sender: FDA-Public Use
  Company Number: BR-JNJFOC-20070606284

PATIENT
  Age: 10 Year
  Sex: Male
  Weight: 21 kg

DRUGS (3)
  1. HALDOL [Suspect]
     Indication: CHOREA
     Route: 048
  2. HALDOL [Suspect]
     Indication: CONVULSION
     Route: 048
  3. PENICILLIN [Concomitant]
     Indication: UPPER RESPIRATORY TRACT INFECTION

REACTIONS (5)
  - AGITATION [None]
  - HYPERTHERMIA [None]
  - HYPERTONIA [None]
  - MUSCLE RIGIDITY [None]
  - OPISTHOTONUS [None]
